FAERS Safety Report 7621596-2 (Version None)
Quarter: 2011Q3

REPORT INFORMATION
  Report Type: 
  Country: None (occurrence: None)
  Receive Date: 20110719
  Receipt Date: 20110520
  Transmission Date: 20111222
  Serious: Yes (Other)
  Sender: FDA-Public Use
  Company Number: PHHY2011BR44662

PATIENT
  Sex: Female

DRUGS (5)
  1. TRAMADON [Concomitant]
     Dosage: UNK UKN, UNK
     Route: 065
  2. CLONAZEPAM [Concomitant]
     Dosage: UNK UKN, UNK
     Route: 065
     Dates: start: 20080101
  3. MORPHINE [Concomitant]
     Dosage: UNK UKN, UNK
     Route: 065
  4. DICLOFENAC SODIUM [Suspect]
     Dosage: 50 MG, UNK
     Route: 048
     Dates: start: 20080101
  5. PAMELOR [Suspect]
     Dosage: 50 MG, UNK
     Route: 048
     Dates: start: 20080101

REACTIONS (1)
  - PAIN [None]
